FAERS Safety Report 24588639 (Version 5)
Quarter: 2025Q4

REPORT INFORMATION
  Report Type: Spontaneous
  Country: US (occurrence: US)
  Receive Date: 20241107
  Receipt Date: 20251110
  Transmission Date: 20260118
  Serious: Yes (Death, Other)
  Sender: INSMED
  Company Number: US-INSMED, INC.-2024-02676-US

PATIENT
  Sex: Male

DRUGS (7)
  1. ARIKAYCE [Suspect]
     Active Substance: AMIKACIN
     Indication: Cystic fibrosis
     Dosage: 590 MICROGRAM, ONCE DAILY FOR ONE WEEK ON AND ONE WEEK OFF AS DIRECTED
     Route: 055
     Dates: start: 20240627, end: 2024
  2. ARIKAYCE [Suspect]
     Active Substance: AMIKACIN
     Dosage: 590 MILLIGRAM ONCE DAILY FOR ONE WEEK ON AND ONE WEEK OFF AS DIRECTED
     Route: 055
     Dates: start: 2024, end: 2024
  3. ARIKAYCE [Suspect]
     Active Substance: AMIKACIN
     Dosage: UNK UNK, UNK
     Route: 055
     Dates: start: 2025, end: 2025
  4. ARIKAYCE [Suspect]
     Active Substance: AMIKACIN
     Dosage: 590 MILLIGRAM, QOD
     Route: 055
     Dates: start: 2025
  5. TOBI [Suspect]
     Active Substance: TOBRAMYCIN
     Indication: Product used for unknown indication
     Dosage: UNK UNK, UNK
     Route: 065
  6. ALBUTEROL [Concomitant]
     Active Substance: ALBUTEROL
     Indication: Product used for unknown indication
     Dosage: UNK, UNK
     Route: 065
  7. CAYSTON [Concomitant]
     Active Substance: AZTREONAM
     Indication: Product used for unknown indication
     Dosage: UNK UNK, UNK
     Route: 065

REACTIONS (9)
  - Death [Fatal]
  - Cardiac failure [Not Recovered/Not Resolved]
  - Respiratory failure [Not Recovered/Not Resolved]
  - Condition aggravated [Unknown]
  - Productive cough [Not Recovered/Not Resolved]
  - Dyspnoea [Not Recovered/Not Resolved]
  - Adverse drug reaction [Unknown]
  - Off label use [Unknown]
  - Therapy interrupted [Unknown]

NARRATIVE: CASE EVENT DATE: 20240101
